FAERS Safety Report 7270345-9 (Version None)
Quarter: 2011Q1

REPORT INFORMATION
  Report Type: 
  Country: None (occurrence: None)
  Receive Date: 20110202
  Receipt Date: 20110128
  Transmission Date: 20110831
  Serious: Yes (Hospitalization, Other)
  Sender: FDA-Public Use
  Company Number: US-ABBOTT-11P-163-0701319-00

PATIENT
  Sex: Female

DRUGS (18)
  1. PRENATAL VITAMINS [Concomitant]
     Indication: PRODUCT USED FOR UNKNOWN INDICATION
     Dates: start: 20100623, end: 20101227
  2. COFFEE [Concomitant]
     Dosage: 1/2-SERVING PER DAY
     Dates: start: 20101115, end: 20101227
  3. TYLENOL-500 [Concomitant]
     Route: 048
     Dates: start: 20101108, end: 20101227
  4. OTHER CHEMICALS/EXPOSURE [Concomitant]
     Indication: HYPERTENSION
     Route: 048
     Dates: start: 20101128, end: 20101227
  5. STEROID NOS [Concomitant]
     Indication: PRODUCT USED FOR UNKNOWN INDICATION
     Route: 050
     Dates: start: 20101224, end: 20101225
  6. IV FLUIDS NOS [Concomitant]
     Indication: PRODUCT USED FOR UNKNOWN INDICATION
     Route: 042
     Dates: start: 20101220, end: 20101227
  7. WINE [Concomitant]
     Indication: PRODUCT USED FOR UNKNOWN INDICATION
     Dosage: 2 SERVINGS PER DAY
     Dates: start: 20100612, end: 20100618
  8. PREDNISONE [Concomitant]
     Indication: PSORIASIS
  9. HUMIRA [Suspect]
     Indication: RHEUMATOID ARTHRITIS
     Dates: start: 20100612, end: 20101121
  10. FOLIC ACID [Concomitant]
     Indication: PRODUCT USED FOR UNKNOWN INDICATION
     Dates: start: 20100612, end: 20101227
  11. PREDNISONE [Concomitant]
     Indication: RHEUMATOID ARTHRITIS
     Route: 048
     Dates: start: 20101122, end: 20101227
  12. PREDNISONE [Concomitant]
     Indication: PRODUCT USED FOR UNKNOWN INDICATION
     Dates: start: 20101101
  13. PNV/DHA [Concomitant]
     Indication: PRODUCT USED FOR UNKNOWN INDICATION
     Dates: start: 20100612, end: 20101227
  14. TYLENOL-500 [Concomitant]
     Indication: HEADACHE
     Route: 048
     Dates: start: 20100612, end: 20100917
  15. LASIX [Concomitant]
     Indication: HYPERTENSION
     Route: 042
     Dates: start: 20101220, end: 20101227
  16. HUMIRA [Suspect]
     Indication: PSORIASIS
  17. COFFEE [Concomitant]
     Indication: PRODUCT USED FOR UNKNOWN INDICATION
     Dosage: 1 SERVING PER DAY
     Dates: start: 20100612, end: 20101114
  18. MAGNESIUM [Concomitant]
     Indication: CONVULSION PROPHYLAXIS
     Route: 042
     Dates: start: 20101226, end: 20101226

REACTIONS (3)
  - GESTATIONAL HYPERTENSION [None]
  - DRUG EXPOSURE DURING PREGNANCY [None]
  - RENAL FAILURE [None]
